FAERS Safety Report 23547396 (Version 5)
Quarter: 2025Q4

REPORT INFORMATION
  Report Type: Spontaneous
  Country: US (occurrence: US)
  Receive Date: 20240221
  Receipt Date: 20251104
  Transmission Date: 20260118
  Serious: Yes (Hospitalization, Other)
  Sender: SANOFI AVENTIS
  Company Number: US-SA-SAC20240220000116

PATIENT
  Sex: Female
  Weight: 59.41 kg

DRUGS (32)
  1. DUPIXENT [Suspect]
     Active Substance: DUPILUMAB
     Indication: Dermatitis atopic
     Dosage: 300 MG, QOW
     Route: 058
  2. DUPIXENT [Suspect]
     Active Substance: DUPILUMAB
     Indication: Asthma
  3. DUPIXENT [Suspect]
     Active Substance: DUPILUMAB
     Indication: Illness
  4. PREDNISONE [Suspect]
     Active Substance: PREDNISONE
     Dosage: 5 MG
  5. TOBRAMYCIN [Concomitant]
     Active Substance: TOBRAMYCIN
  6. MEROPENEM [Concomitant]
     Active Substance: MEROPENEM
  7. FRANKINCENSE [Concomitant]
     Active Substance: FRANKINCENSE
  8. VANCOMYCIN HYDROCHLORIDE [Concomitant]
     Active Substance: VANCOMYCIN HYDROCHLORIDE
  9. BREO ELLIPTA [Concomitant]
     Active Substance: FLUTICASONE FUROATE\VILANTEROL TRIFENATATE
  10. SPIRIVA RESPIMAT [Concomitant]
     Active Substance: TIOTROPIUM BROMIDE
  11. REDNISONE [Concomitant]
  12. JANVIA [Concomitant]
  13. BETAMETHASONE\CLOTRIMAZOLE [Concomitant]
     Active Substance: BETAMETHASONE\CLOTRIMAZOLE
  14. ALBUTEROL SULFATE [Concomitant]
     Active Substance: ALBUTEROL SULFATE
  15. FERROUS SULFATE [Concomitant]
     Active Substance: FERROUS SULFATE
  16. DALIRESP [Concomitant]
     Active Substance: ROFLUMILAST
  17. FUROSEMIDE [Concomitant]
     Active Substance: FUROSEMIDE
  18. FENOFIBRATE [Concomitant]
     Active Substance: FENOFIBRATE
  19. ESCITALOPRAM OXALATE [Concomitant]
     Active Substance: ESCITALOPRAM OXALATE
  20. CALCIUM [Concomitant]
     Active Substance: CALCIUM
  21. LEVOXYL [Concomitant]
     Active Substance: LEVOTHYROXINE SODIUM
  22. TYMLOS [Concomitant]
     Active Substance: ABALOPARATIDE
  23. VITAMIN D3 [Concomitant]
     Active Substance: CHOLECALCIFEROL
     Dosage: UNK
  24. VITAMIN C [Concomitant]
     Active Substance: ASCORBIC ACID
  25. SODIUM CHLORIDE [Concomitant]
     Active Substance: SODIUM CHLORIDE
  26. CALCIUM CARBONATE [Concomitant]
     Active Substance: CALCIUM CARBONATE
  27. CAYSTON [Concomitant]
     Active Substance: AZTREONAM
  28. TRAMADOL HCL [Concomitant]
     Active Substance: TRAMADOL HYDROCHLORIDE
  29. METHOCARBAMOL [Concomitant]
     Active Substance: METHOCARBAMOL
  30. CLOTRIMAZOLE AND BETAMETHASONE DIPROPIONATE [Concomitant]
     Active Substance: BETAMETHASONE\BETAMETHASONE DIPROPIONATE\CLOTRIMAZOLE
  31. MELOXICAM [Concomitant]
     Active Substance: MELOXICAM
  32. TYLENOL EXTRA STRENGTH [Concomitant]
     Active Substance: ACETAMINOPHEN

REACTIONS (13)
  - Adrenal insufficiency [Unknown]
  - Lung disorder [Unknown]
  - Hypotension [Unknown]
  - Asthenia [Unknown]
  - Malnutrition [Unknown]
  - Fatigue [Unknown]
  - Respiratory disorder [Unknown]
  - Cough [Unknown]
  - Secretion discharge [Unknown]
  - Condition aggravated [Unknown]
  - Chills [Unknown]
  - Illness [Unknown]
  - Pyrexia [Unknown]

NARRATIVE: CASE EVENT DATE: 20240201
